FAERS Safety Report 16353412 (Version 1)
Quarter: 2019Q2

REPORT INFORMATION
  Report Type: Spontaneous
  Country: US (occurrence: US)
  Receive Date: 20190418
  Receipt Date: 20190418
  Transmission Date: 20190711
  Serious: Yes (Other)
  Sender: FDA-Public Use
  Company Number: None

PATIENT
  Age: 52 Year
  Sex: Female
  Weight: 57.61 kg

DRUGS (19)
  1. CALCI-MIX (CALCIUM CARBONATE) 500MG QD [Concomitant]
  2. ZONEGRAN (ZONIAAMIDE)  100MG, 5 TABLET [Concomitant]
  3. KEPPRA XR (LEVETIRACETAM) 750 MG 2 TABLET QD [Concomitant]
  4. CORTEF (HYDROCORTISONE) 10 MG, 1 TABLET BID [Concomitant]
  5. POTASSIUM CHLORIDE ER 10 MEQ 1 TABLET BID [Concomitant]
  6. HYDROCHLOROTHIIDE 1 TABLET QD [Concomitant]
  7. PRAMIPEXOLE 0.25 MG 1 TABLET QHS [Concomitant]
  8. CYANOCOBALAMIN (VIT B-12) 1,000 MCG TABLET, 0.5 TABLET QD [Concomitant]
  9. PETADOLEX 75 (BUTTERBUR ROOT EXTRACT) 1 CAPSULE BID [Concomitant]
  10. MAXALT (RIZATRIPTAN) 10 MG EVERY 2 HRS [Concomitant]
  11. APIXABAN 5 MG [Suspect]
     Active Substance: APIXABAN
     Indication: ANTIPHOSPHOLIPID SYNDROME
     Route: 048
     Dates: start: 20151015
  12. TYLENOL EXTRA STRENGTH (ACETAMINOPHEN) 500 MG [Concomitant]
     Dates: start: 20150814
  13. PRAVACID (LANSOPRAZOLE) 30 MG 1 CAPSULE QD [Concomitant]
  14. MEOPROLOL SUCCINATE ER 25 MG 1 TABLET QD [Concomitant]
  15. APIXABAN 5 MG [Suspect]
     Active Substance: APIXABAN
     Indication: THROMBOSIS PROPHYLAXIS
     Route: 048
     Dates: start: 20151015
  16. SERTRALINE 50 MG 1 TABLET DAILY [Concomitant]
  17. ELIQUIS (APIXABAN) 5 MG 1 TABLET BID [Concomitant]
  18. DHEA (PRASTERONE) 50 MG 1 CAPSULE QD [Concomitant]
  19. TOPROL XL 25 MG DAILY [Concomitant]
     Dates: start: 20151215

REACTIONS (2)
  - Cerebral ischaemia [None]
  - Cerebrovascular accident [None]
